FAERS Safety Report 5400171-4 (Version None)
Quarter: 2007Q3

REPORT INFORMATION
  Report Type: 
  Country: None (occurrence: None)
  Receive Date: 20070725
  Receipt Date: 20070712
  Transmission Date: 20080115
  Serious: Yes (Congenital Anomaly)
  Sender: FDA-Public Use
  Company Number: GXKR2007GB06019

PATIENT

DRUGS (1)
  1. SERTRALINE [Suspect]
     Dosage: TRANSPLACENTAL
     Route: 064
     Dates: start: 20060101

REACTIONS (4)
  - CONGENITAL ANOMALY [None]
  - DRUG EXPOSURE DURING PREGNANCY [None]
  - LOWER LIMB DEFORMITY [None]
  - UPPER LIMB DEFORMITY [None]
